FAERS Safety Report 12924227 (Version 10)
Quarter: 2017Q2

REPORT INFORMATION
  Report Type: Spontaneous
  Country: US (occurrence: US)
  Receive Date: 20161109
  Receipt Date: 20170422
  Transmission Date: 20170830
  Serious: Yes (Congenital Anomaly, Other)
  Sender: FDA-Public Use
  Company Number: PHEH2016US028672

PATIENT
  Sex: Male

DRUGS (3)
  1. ZOFRAN [Suspect]
     Active Substance: ONDANSETRON HYDROCHLORIDE
     Indication: FOETAL EXPOSURE DURING PREGNANCY
     Route: 064
  2. ZOFRAN ODT [Suspect]
     Active Substance: ONDANSETRON HYDROCHLORIDE
     Indication: FOETAL EXPOSURE DURING PREGNANCY
     Route: 064
  3. ONDANSETRON [Suspect]
     Active Substance: ONDANSETRON
     Indication: FOETAL EXPOSURE DURING PREGNANCY
     Dosage: MOTHER DOSE: 04 MG, QD
     Route: 064

REACTIONS (27)
  - Eczema nummular [Unknown]
  - Viral infection [Unknown]
  - Dermatitis diaper [Unknown]
  - Injury [Unknown]
  - Gastrooesophageal reflux disease [Unknown]
  - Ear infection [Unknown]
  - Urticaria [Unknown]
  - Diarrhoea [Unknown]
  - Dizziness [Unknown]
  - Bicuspid aortic valve [Unknown]
  - Congenital aortic valve incompetence [Unknown]
  - Foetal exposure during pregnancy [Unknown]
  - Dacryostenosis acquired [Unknown]
  - Febrile convulsion [Unknown]
  - Granuloma skin [Unknown]
  - Bronchiolitis [Unknown]
  - Dermatitis contact [Unknown]
  - Cardiac murmur [Unknown]
  - Hypospadias [Unknown]
  - Arrhythmia [Unknown]
  - Gastroenteritis viral [Unknown]
  - Speech disorder [Unknown]
  - Chest pain [Unknown]
  - Otitis media chronic [Unknown]
  - Upper respiratory tract infection [Unknown]
  - Oropharyngeal pain [Unknown]
  - Constipation [Unknown]
